FAERS Safety Report 4880465-1 (Version None)
Quarter: 2006Q1

REPORT INFORMATION
  Report Type: 
  Country: None (occurrence: None)
  Receive Date: 20060113
  Receipt Date: 20050614
  Transmission Date: 20060701
  Serious: Yes (Hospitalization)
  Sender: FDA-Public Use
  Company Number: US-MERCK-0506USA02431

PATIENT
  Age: 48 Year
  Sex: Female
  Weight: 87 kg

DRUGS (19)
  1. ZOCOR [Suspect]
     Indication: HYPERLIPIDAEMIA
     Route: 048
     Dates: start: 20030818, end: 20031017
  2. ZOCOR [Suspect]
     Route: 048
     Dates: start: 20020301, end: 20030817
  3. CELEXA [Concomitant]
     Route: 048
  4. FLOVENT [Concomitant]
     Route: 055
  5. IPRATROPIUM BROMIDE [Concomitant]
     Route: 055
  6. ALBUTEROL [Concomitant]
     Route: 055
  7. ACIPHEX [Concomitant]
     Route: 048
  8. SINGULAIR [Concomitant]
     Route: 048
  9. CARDIZEM CD [Concomitant]
     Route: 048
  10. LASIX [Concomitant]
     Indication: JOINT SWELLING
     Route: 065
  11. TOPROL-XL [Concomitant]
     Route: 048
     Dates: start: 20030219
  12. PLAVIX [Concomitant]
     Route: 048
  13. ALLEGRA [Concomitant]
     Route: 048
  14. NITROGLYCERIN [Concomitant]
     Route: 060
  15. KLOR-CON [Concomitant]
     Route: 048
  16. IBUPROFEN [Concomitant]
     Route: 065
  17. ZESTORETIC [Concomitant]
     Route: 048
  18. ASPIRIN [Concomitant]
     Route: 048
  19. NAPROXEN [Concomitant]
     Route: 048

REACTIONS (27)
  - ARTHRALGIA [None]
  - BACK PAIN [None]
  - BLOOD GLUCOSE INCREASED [None]
  - BRONCHITIS [None]
  - CARPAL TUNNEL SYNDROME [None]
  - CHEST PAIN [None]
  - CORONARY ARTERY DISEASE [None]
  - DEPRESSION [None]
  - EYE DISCHARGE [None]
  - EYE SWELLING [None]
  - FATIGUE [None]
  - GENERALISED OEDEMA [None]
  - HERPES VIRUS INFECTION [None]
  - HYPERHIDROSIS [None]
  - LOCAL SWELLING [None]
  - MYALGIA [None]
  - OCULAR HYPERAEMIA [None]
  - PNEUMONIA BACTERIAL [None]
  - RHABDOMYOLYSIS [None]
  - SINUSITIS [None]
  - STOMATITIS [None]
  - SWELLING FACE [None]
  - SYSTEMIC LUPUS ERYTHEMATOSUS [None]
  - THIRST [None]
  - UPPER RESPIRATORY TRACT INFECTION [None]
  - WEIGHT INCREASED [None]
  - WRONG TECHNIQUE IN DRUG USAGE PROCESS [None]
